FAERS Safety Report 19823488 (Version 1)
Quarter: 2021Q3

REPORT INFORMATION
  Report Type: Spontaneous
  Country: JP (occurrence: JP)
  Receive Date: 20210913
  Receipt Date: 20210913
  Transmission Date: 20211014
  Serious: Yes (Hospitalization)
  Sender: FDA-Public Use
  Company Number: JP-BAYER-2021-209287

PATIENT
  Age: 70 Year

DRUGS (1)
  1. STIVARGA [Suspect]
     Active Substance: REGORAFENIB
     Dosage: UNK
     Dates: start: 20210804, end: 20210825

REACTIONS (2)
  - Traumatic fracture [Unknown]
  - Fall [Unknown]

NARRATIVE: CASE EVENT DATE: 20210908
